FAERS Safety Report 12012706 (Version 2)
Quarter: 2016Q1

REPORT INFORMATION
  Report Type: Report from Study
  Country: ES (occurrence: ES)
  Receive Date: 20160205
  Receipt Date: 20160215
  Transmission Date: 20160526
  Serious: Yes (Hospitalization, Other)
  Sender: FDA-Public Use
  Company Number: ES-ABBVIE-16P-144-1551527-00

PATIENT
  Age: 71 Year

DRUGS (2)
  1. DUODOPA [Suspect]
     Active Substance: CARBIDOPA\LEVODOPA
     Indication: PARKINSON^S DISEASE
     Route: 050
     Dates: start: 20160129
  2. ENEMA (NON-ABBVIE) [Concomitant]
     Indication: PRODUCT USED FOR UNKNOWN INDICATION

REACTIONS (7)
  - Flatulence [Unknown]
  - Abdominal pain [Recovering/Resolving]
  - Intestinal dilatation [Unknown]
  - Pyrexia [Recovered/Resolved]
  - Colonic haematoma [Unknown]
  - Gastrointestinal disorder [Unknown]
  - Device issue [Unknown]

NARRATIVE: CASE EVENT DATE: 20160130
